FAERS Safety Report 17074541 (Version 1)
Quarter: 2019Q4

REPORT INFORMATION
  Report Type: Spontaneous
  Country: GB (occurrence: GB)
  Receive Date: 20191126
  Receipt Date: 20191126
  Transmission Date: 20200122
  Serious: Yes (Other)
  Sender: FDA-Public Use
  Company Number: GB-TEVA-2019-GB-1141046

PATIENT
  Age: 31 Year
  Sex: Female
  Weight: 137.88 kg

DRUGS (3)
  1. IBUPROFEN. [Concomitant]
     Active Substance: IBUPROFEN
  2. PARACETAMOL [Concomitant]
     Active Substance: ACETAMINOPHEN
  3. FLUOXETINE [Suspect]
     Active Substance: FLUOXETINE HYDROCHLORIDE
     Indication: DEPRESSION SUICIDAL
     Dosage: 20 MG PER DAY
     Route: 048
     Dates: start: 20191012, end: 20191019

REACTIONS (1)
  - Chest pain [Unknown]

NARRATIVE: CASE EVENT DATE: 20191014
